FAERS Safety Report 5029025-2 (Version None)
Quarter: 2006Q2

REPORT INFORMATION
  Report Type: 
  Country: None (occurrence: None)
  Receive Date: 20060613
  Receipt Date: 20060601
  Transmission Date: 20061013
  Serious: Yes (Other)
  Sender: FDA-Public Use
  Company Number: 2006RL000188

PATIENT
  Sex: 0

DRUGS (2)
  1. PROPRANOLOL HYDROCHLORIDE [Suspect]
     Indication: OFF LABEL USE
     Dosage: BID;PO
     Route: 048
  2. PROPRANOLOL HYDROCHLORIDE [Suspect]
     Indication: PORTAL HYPERTENSION
     Dosage: BID;PO
     Route: 048

REACTIONS (3)
  - BLEEDING VARICOSE VEIN [None]
  - BLOOD PRESSURE SYSTOLIC DECREASED [None]
  - HEART RATE DECREASED [None]
